FAERS Safety Report 6656834-6 (Version None)
Quarter: 2010Q1

REPORT INFORMATION
  Report Type: 
  Country: None (occurrence: None)
  Receive Date: 20100325
  Receipt Date: 20100319
  Transmission Date: 20100710
  Serious: Yes (Other)
  Sender: FDA-Public Use
  Company Number: 1000012612

PATIENT
  Age: 60 Year
  Sex: Female

DRUGS (3)
  1. LEXAPRO [Suspect]
     Indication: DEPRESSION
     Dosage: 10 MG (10 MG, 1 IN 1 D), ORAL
     Route: 048
     Dates: start: 20080101
  2. FENTANYL-100 [Concomitant]
  3. LORTAB [Concomitant]

REACTIONS (2)
  - CATARACT [None]
  - IMPAIRED DRIVING ABILITY [None]
